FAERS Safety Report 5162037-7 (Version None)
Quarter: 2006Q4

REPORT INFORMATION
  Report Type: 
  Country: None (occurrence: None)
  Receive Date: 20061121
  Receipt Date: 20061107
  Transmission Date: 20070319
  Serious: Yes (Life-Threatening, Hospitalization)
  Sender: FDA-Public Use
  Company Number: DSA_28814_2006

PATIENT
  Age: 29 Year
  Sex: Female

DRUGS (4)
  1. TAVOR [Suspect]
     Dosage: 2 MG ONCE PO
     Route: 048
     Dates: start: 20061014, end: 20061014
  2. DOLORMIN                                  /00109201/ [Suspect]
     Dosage: 7200 MG ONCE PO
     Route: 048
     Dates: start: 20061014, end: 20061014
  3. METHYLENEDIOXYAMPHETAMINE [Suspect]
     Dosage: 2 TAB ONCE PO
     Route: 048
     Dates: start: 20061014, end: 20061014
  4. MELPERONE [Suspect]
     Dosage: 2.5 TAB ONCE PO
     Route: 048
     Dates: start: 20061014, end: 20061014

REACTIONS (5)
  - CHILLS [None]
  - INTENTIONAL OVERDOSE [None]
  - SOMNOLENCE [None]
  - SUICIDE ATTEMPT [None]
  - TACHYCARDIA [None]
